FAERS Safety Report 16544063 (Version 1)
Quarter: 2019Q3

REPORT INFORMATION
  Report Type: Spontaneous
  Country: US (occurrence: US)
  Receive Date: 20190709
  Receipt Date: 20190709
  Transmission Date: 20191004
  Serious: No
  Sender: FDA-Public Use
  Company Number: US-JNJFOC-20190711344

PATIENT
  Sex: Male
  Weight: 156.82 kg

DRUGS (5)
  1. PROAIR HFA [Concomitant]
     Active Substance: ALBUTEROL SULFATE
     Indication: PRODUCT USED FOR UNKNOWN INDICATION
     Dosage: 2 INHALATIONS Q4 HRS PRN
  2. ZYRTEC [Suspect]
     Active Substance: CETIRIZINE HYDROCHLORIDE
     Indication: RHINITIS ALLERGIC
     Route: 065
  3. PROPRANOLOL HCL [Concomitant]
     Active Substance: PROPRANOLOL HYDROCHLORIDE
     Indication: PRODUCT USED FOR UNKNOWN INDICATION
     Dosage: 20 MILLIGRAM
     Route: 048
     Dates: start: 20180414
  4. MECLIZINE HCL [Concomitant]
     Active Substance: MECLIZINE HYDROCHLORIDE
     Indication: DIZZINESS
     Dosage: 1 DOSAGE FORM EVERY EIGHT HOURS AS NEEDED
  5. OLMESARTAN [Concomitant]
     Active Substance: OLMESARTAN
     Indication: HYPERTENSION
     Dosage: 40 MILLIGRAM, ONCE DAILY (QD)
     Route: 048
     Dates: start: 20190506

REACTIONS (2)
  - Dizziness [Unknown]
  - Vertigo positional [Unknown]
